FAERS Safety Report 15065654 (Version 1)
Quarter: 2018Q2

REPORT INFORMATION
  Report Type: Spontaneous
  Country: US (occurrence: US)
  Receive Date: 20180626
  Receipt Date: 20180626
  Transmission Date: 20180711
  Serious: No
  Sender: FDA-Public Use
  Company Number: US-PFIZER INC-2018258062

PATIENT
  Age: 54 Year
  Sex: Male

DRUGS (1)
  1. XELJANZ [Suspect]
     Active Substance: TOFACITINIB CITRATE
     Dosage: UNK

REACTIONS (6)
  - Muscle spasms [Unknown]
  - Back pain [Unknown]
  - Limb discomfort [Unknown]
  - Mobility decreased [Unknown]
  - Drug effect incomplete [Unknown]
  - Arthralgia [Unknown]
